FAERS Safety Report 23585966 (Version 1)
Quarter: 2024Q1

REPORT INFORMATION
  Report Type: Report from Study
  Country: US (occurrence: US)
  Receive Date: 20240301
  Receipt Date: 20240301
  Transmission Date: 20240410
  Serious: No
  Sender: FDA-Public Use
  Company Number: US-AstraZeneca-CH-00573244A

PATIENT
  Sex: Female

DRUGS (1)
  1. SOLIRIS [Suspect]
     Active Substance: ECULIZUMAB
     Indication: Product used for unknown indication
     Dosage: UNK
     Route: 065

REACTIONS (8)
  - Fatigue [Unknown]
  - Regurgitation [Unknown]
  - Drug ineffective [Unknown]
  - Gait disturbance [Unknown]
  - Peripheral swelling [Unknown]
  - Respiratory disorder [Unknown]
  - Disturbance in attention [Unknown]
  - Muscular weakness [Unknown]
